FAERS Safety Report 4889275-2 (Version None)
Quarter: 2006Q1

REPORT INFORMATION
  Report Type: 
  Country: None (occurrence: None)
  Receive Date: 20060124
  Receipt Date: 20060117
  Transmission Date: 20060701
  Serious: Yes (Hospitalization)
  Sender: FDA-Public Use
  Company Number: US-JNJFOC-20060104008

PATIENT
  Sex: Female
  Weight: 42.64 kg

DRUGS (3)
  1. DURAGESIC-100 [Suspect]
     Route: 062
  2. PLAQUENIL [Concomitant]
     Route: 048
  3. CREON [Concomitant]
     Indication: PANCREATITIS
     Route: 048

REACTIONS (2)
  - APPLICATION SITE DERMATITIS [None]
  - PANCREATITIS CHRONIC [None]
